FAERS Safety Report 6160521-0 (Version None)
Quarter: 2009Q2

REPORT INFORMATION
  Report Type: 
  Country: None (occurrence: None)
  Receive Date: 20090420
  Receipt Date: 20090406
  Transmission Date: 20091009
  Serious: Yes (Disabling)
  Sender: FDA-Public Use
  Company Number: US-MERCK-0901USA02770

PATIENT
  Age: 79 Year
  Sex: Female
  Weight: 75 kg

DRUGS (23)
  1. ZETIA [Suspect]
     Indication: HYPERLIPIDAEMIA
     Route: 048
     Dates: start: 20071228, end: 20081222
  2. PREVACID [Concomitant]
     Route: 048
  3. COREG [Concomitant]
     Route: 065
  4. AMLODIPINE BESYLATE [Concomitant]
     Route: 048
  5. DETROL [Concomitant]
     Route: 048
  6. LEVOTHYROXINE SODIUM [Concomitant]
     Route: 048
  7. VITAMIN E ACETATE [Concomitant]
     Route: 048
  8. VITAMINS (UNSPECIFIED) [Concomitant]
     Route: 048
  9. ASPIRIN [Concomitant]
     Route: 048
  10. NITROGLYCERIN [Concomitant]
     Indication: CHEST PAIN
     Route: 060
  11. NITROGLYCERIN [Concomitant]
     Indication: PROPHYLAXIS
     Route: 060
  12. CHOLECALCIFEROL [Concomitant]
     Route: 048
  13. ZOLPIDEM TARTRATE [Concomitant]
     Route: 048
  14. UBIDECARENONE [Concomitant]
     Route: 048
  15. ISOSORBIDE MONONITRATE [Concomitant]
     Route: 048
  16. PREDNISONE [Concomitant]
     Route: 065
  17. ACETAMINOPHEN AND HYDROCODONE BITARTRATE [Concomitant]
     Route: 048
  18. UBIDECARENONE [Concomitant]
     Route: 048
  19. POTASSIUM CHLORIDE [Concomitant]
     Route: 048
  20. TORSEMIDE [Concomitant]
     Route: 048
  21. MAGNESIUM (UNSPECIFIED) [Concomitant]
     Route: 048
  22. MAGNESIUM (UNSPECIFIED) [Concomitant]
     Route: 048
  23. CHLORPHENIRAMINE MALEATE [Concomitant]
     Route: 048

REACTIONS (12)
  - AMNESIA [None]
  - ANXIETY [None]
  - CARDIAC FAILURE CHRONIC [None]
  - COGNITIVE DISORDER [None]
  - DEPRESSION [None]
  - FATIGUE [None]
  - HEADACHE [None]
  - HYPERSENSITIVITY [None]
  - ISCHAEMIC CARDIOMYOPATHY [None]
  - MUSCULAR WEAKNESS [None]
  - MYALGIA [None]
  - PULMONARY CONGESTION [None]
